FAERS Safety Report 20520219 (Version 1)
Quarter: 2022Q1

REPORT INFORMATION
  Report Type: Spontaneous
  Country: GB (occurrence: GB)
  Receive Date: 20220225
  Receipt Date: 20220225
  Transmission Date: 20220423
  Serious: Yes (Disabling)
  Sender: FDA-Public Use
  Company Number: None

PATIENT
  Age: 84 Year
  Sex: Female
  Weight: 54 kg

DRUGS (6)
  1. EDOXABAN [Suspect]
     Active Substance: EDOXABAN
     Indication: Ill-defined disorder
     Dosage: 30 MG, QD
     Route: 048
     Dates: start: 20200928, end: 20201112
  2. BISOPROLOL [Concomitant]
     Active Substance: BISOPROLOL
     Indication: Ill-defined disorder
     Dosage: UNK
  3. GLICLAZIDE [Concomitant]
     Active Substance: GLICLAZIDE
     Indication: Ill-defined disorder
     Dosage: UNK
  4. INSULIN HUMAN [Concomitant]
     Active Substance: INSULIN HUMAN
     Indication: Ill-defined disorder
     Dosage: UNK
  5. METFORMIN [Concomitant]
     Active Substance: METFORMIN HYDROCHLORIDE
     Indication: Ill-defined disorder
     Dosage: UNK
  6. SIMVASTATIN [Concomitant]
     Active Substance: SIMVASTATIN
     Indication: Ill-defined disorder
     Dosage: UNK

REACTIONS (1)
  - Pain in extremity [Recovered/Resolved]
